FAERS Safety Report 6051643-3 (Version None)
Quarter: 2009Q1

REPORT INFORMATION
  Report Type: 
  Country: None (occurrence: None)
  Receive Date: 20090126
  Receipt Date: 20090121
  Transmission Date: 20090719
  Serious: Yes (Other)
  Sender: FDA-Public Use
  Company Number: FR-JNJFOC-20090105262

PATIENT
  Age: 72 Year
  Sex: Male
  Weight: 77 kg

DRUGS (6)
  1. DOXORUBICIN HCL [Suspect]
     Indication: MYCOSIS FUNGOIDES
     Route: 042
  2. TARGRETIN [Suspect]
     Indication: MYCOSIS FUNGOIDES
     Route: 048
  3. ATORVASTATIN CALCIUM [Concomitant]
     Indication: HYPERTRIGLYCERIDAEMIA
     Route: 065
  4. DETENSIEL [Concomitant]
     Indication: HYPERTENSION
     Route: 065
  5. ATARAX [Concomitant]
     Indication: PRURITUS
     Route: 065
  6. LEVOTHYROX [Concomitant]
     Indication: HYPOTHYROIDISM
     Route: 065

REACTIONS (1)
  - NEUROPATHY PERIPHERAL [None]
